FAERS Safety Report 7791561-3 (Version None)
Quarter: 2011Q3

REPORT INFORMATION
  Report Type: 
  Country: None (occurrence: None)
  Receive Date: 20110930
  Receipt Date: 20110930
  Transmission Date: 20111222
  Serious: Yes (Hospitalization)
  Sender: FDA-Public Use
  Company Number: None

PATIENT
  Age: 49 Year
  Sex: Female

DRUGS (1)
  1. LOESTRIN 1/10 FE [Suspect]
     Indication: CONTRACEPTION
     Dosage: 1 PILL/DAY ONCE A DAY BY MOUTH ON AND OFF
     Route: 048
     Dates: start: 20110721, end: 20110811

REACTIONS (2)
  - PULMONARY EMBOLISM [None]
  - CHEST PAIN [None]
